FAERS Safety Report 20850211 (Version 1)
Quarter: 2022Q2

REPORT INFORMATION
  Report Type: Spontaneous
  Country: TN (occurrence: TN)
  Receive Date: 20220519
  Receipt Date: 20220519
  Transmission Date: 20220720
  Serious: No
  Sender: FDA-Public Use
  Company Number: TN-LUPIN PHARMACEUTICALS INC.-2022-07136

PATIENT
  Age: 30 Year
  Sex: Female

DRUGS (5)
  1. HYDROCORTISONE BUTYRATE [Suspect]
     Active Substance: HYDROCORTISONE BUTYRATE
     Indication: Pituitary apoplexy
     Dosage: UNK
     Route: 065
  2. CABERGOLINE [Suspect]
     Active Substance: CABERGOLINE
     Indication: Prolactin-producing pituitary tumour
     Dosage: 3 MG, ONCE A WEEK
     Route: 048
  3. CABERGOLINE [Suspect]
     Active Substance: CABERGOLINE
     Dosage: INITIAL DOSAGE NOT STATED
     Route: 048
     Dates: start: 2014
  4. BROMOCRIPTINE [Suspect]
     Active Substance: BROMOCRIPTINE
     Indication: Headache
     Dosage: 5 MG, AT BEDTIME
     Route: 065
  5. INSULIN NOS [Suspect]
     Active Substance: INSULIN NOS
     Indication: Gestational diabetes
     Dosage: UNK
     Route: 065

REACTIONS (2)
  - Exposure during pregnancy [Unknown]
  - Twin pregnancy [Unknown]
